FAERS Safety Report 11068066 (Version 1)
Quarter: 2015Q2

REPORT INFORMATION
  Report Type: Spontaneous
  Country: US (occurrence: None)
  Receive Date: 20150424
  Receipt Date: 20150424
  Transmission Date: 20150821
  Serious: No
  Sender: FDA-Public Use
  Company Number: None

PATIENT
  Age: 59 Year
  Sex: Male
  Weight: 88 kg

DRUGS (1)
  1. NOVOLOG [Suspect]
     Active Substance: INSULIN ASPART
     Indication: DIABETES MELLITUS
     Route: 030
     Dates: start: 20150317, end: 20150401

REACTIONS (5)
  - Device ineffective [None]
  - Product quality issue [None]
  - Blood glucose increased [None]
  - Syringe issue [None]
  - Incorrect dose administered by device [None]

NARRATIVE: CASE EVENT DATE: 20150423
